FAERS Safety Report 16955151 (Version 1)
Quarter: 2019Q4

REPORT INFORMATION
  Report Type: Spontaneous
  Country: GB (occurrence: GB)
  Receive Date: 20191024
  Receipt Date: 20191024
  Transmission Date: 20200122
  Serious: Yes (Other)
  Sender: FDA-Public Use
  Company Number: GB-TEVA-2019-GB-1126515

PATIENT
  Age: 4 Year
  Sex: Male

DRUGS (1)
  1. NIFEDIPINE. [Suspect]
     Active Substance: NIFEDIPINE
     Dosage: 45 MILLIGRAM
     Route: 065
     Dates: end: 20181101

REACTIONS (5)
  - Toxicity to various agents [Unknown]
  - Bradycardia [Unknown]
  - Cardiac arrest [Unknown]
  - Product use issue [Unknown]
  - Pallor [Unknown]

NARRATIVE: CASE EVENT DATE: 20181101
